FAERS Safety Report 20312371 (Version 1)
Quarter: 2022Q1

REPORT INFORMATION
  Report Type: Spontaneous
  Country: US (occurrence: None)
  Receive Date: 20220107
  Receipt Date: 20220107
  Transmission Date: 20220423
  Serious: No
  Sender: FDA-Public Use
  Company Number: None

PATIENT
  Age: 39 Year
  Sex: Male
  Weight: 70 kg

DRUGS (1)
  1. BAMLANIVIMAB\ETESEVIMAB [Suspect]
     Active Substance: BAMLANIVIMAB\ETESEVIMAB
     Indication: COVID-19 treatment
     Dosage: 700 MG ONCE IV?
     Route: 042
     Dates: start: 20211126, end: 20211126

REACTIONS (3)
  - Cough [None]
  - Infusion related reaction [None]
  - Wheezing [None]

NARRATIVE: CASE EVENT DATE: 20211128
